FAERS Safety Report 7928704-4 (Version None)
Quarter: 2011Q4

REPORT INFORMATION
  Report Type: 
  Country: None (occurrence: None)
  Receive Date: 20111118
  Receipt Date: 20111115
  Transmission Date: 20120403
  Serious: Yes (Other)
  Sender: FDA-Public Use
  Company Number: US-ABBOTT-11P-163-0867117-00

PATIENT
  Sex: Male
  Weight: 93.978 kg

DRUGS (6)
  1. HUMIRA [Suspect]
     Indication: ANKYLOSING SPONDYLITIS
  2. SOMA [Concomitant]
     Indication: PRODUCT USED FOR UNKNOWN INDICATION
     Dates: start: 20110901
  3. NAPROSYN [Concomitant]
     Indication: PRODUCT USED FOR UNKNOWN INDICATION
     Dates: start: 20110901
  4. HUMIRA [Suspect]
     Indication: CROHN'S DISEASE
     Dates: end: 20111001
  5. CELEBREX [Concomitant]
     Indication: PRODUCT USED FOR UNKNOWN INDICATION
     Dates: start: 20110901
  6. PREDNISOLONE [Concomitant]
     Indication: PRODUCT USED FOR UNKNOWN INDICATION

REACTIONS (7)
  - ABASIA [None]
  - MOBILITY DECREASED [None]
  - HERNIA [None]
  - DRUG INEFFECTIVE [None]
  - PARAESTHESIA [None]
  - CONDITION AGGRAVATED [None]
  - MUSCLE SPASMS [None]
